FAERS Safety Report 24651783 (Version 3)
Quarter: 2025Q2

REPORT INFORMATION
  Report Type: Report from Study
  Country: EG (occurrence: EG)
  Receive Date: 20241122
  Receipt Date: 20250506
  Transmission Date: 20250717
  Serious: No
  Sender: SANOFI AVENTIS
  Company Number: EG-SA-2024SA338267

PATIENT
  Age: 10 Year
  Sex: Male

DRUGS (1)
  1. IMIGLUCERASE [Suspect]
     Active Substance: IMIGLUCERASE
     Indication: Gaucher^s disease
     Dosage: 3 VIALS, QOW
     Route: 041
     Dates: start: 20140801

REACTIONS (1)
  - Blister [Recovered/Resolved with Sequelae]

NARRATIVE: CASE EVENT DATE: 20140801
